FAERS Safety Report 6497405-4 (Version None)
Quarter: 2009Q4

REPORT INFORMATION
  Report Type: 
  Country: None (occurrence: None)
  Receive Date: 20091215
  Receipt Date: 20091207
  Transmission Date: 20100525
  Serious: Yes (Congenital Anomaly, Other)
  Sender: FDA-Public Use
  Company Number: CH-WYE-G05067109

PATIENT
  Age: 0 Day
  Sex: Male
  Weight: 2.7 kg

DRUGS (4)
  1. EFFEXOR XR [Suspect]
     Indication: DEPRESSION
     Route: 064
     Dates: start: 20031101, end: 20081201
  2. EFFEXOR XR [Suspect]
     Route: 064
     Dates: start: 20081202, end: 20081231
  3. EFFEXOR XR [Suspect]
     Route: 064
     Dates: start: 20090101
  4. FOLIC ACID [Concomitant]
     Dosage: DOSE AND FREQUENCY UNKNOWN

REACTIONS (6)
  - ABNORMAL PALMAR/PLANTAR CREASES [None]
  - BREECH PRESENTATION [None]
  - HYPOTONIA NEONATAL [None]
  - NASAL SEPTUM DEVIATION [None]
  - PREMATURE BABY [None]
  - SKULL MALFORMATION [None]
